FAERS Safety Report 9814831 (Version 2)
Quarter: 2014Q2

REPORT INFORMATION
  Report Type: Spontaneous
  Country: CA (occurrence: CA)
  Receive Date: 20140113
  Receipt Date: 20140523
  Transmission Date: 20141212
  Serious: Yes (Other)
  Sender: FDA-Public Use
  Company Number: CA-GLAXOSMITHKLINE-A1053138A

PATIENT
  Age: 69 Year
  Sex: Female
  Weight: 65.9 kg

DRUGS (13)
  1. ADVAIR [Suspect]
     Indication: CHRONIC OBSTRUCTIVE PULMONARY DISEASE
     Dosage: 1PUFF TWICE PER DAY
     Route: 055
     Dates: start: 2012
  2. VENTOLIN [Suspect]
     Indication: PRODUCT USED FOR UNKNOWN INDICATION
     Route: 065
  3. VALSARTAN / HYDROCHLOROTHIAZIDE [Concomitant]
     Indication: HYPERTENSION
  4. ACEBUTOLOL [Concomitant]
     Indication: HYPERTENSION
     Dosage: 200MG PER DAY
  5. CIPRALEX [Concomitant]
     Indication: ANXIETY
     Dosage: 10MG PER DAY
  6. BUPROPION SR [Concomitant]
     Indication: DEPRESSION
     Dosage: 150MG AT NIGHT
  7. PRAMIPEXOLE [Concomitant]
     Indication: RESTLESS LEGS SYNDROME
     Dosage: .25MG AT NIGHT
  8. PANTOPRAZOLE [Concomitant]
     Indication: GASTROOESOPHAGEAL REFLUX DISEASE
     Dosage: 40MG PER DAY
  9. CADUET [Concomitant]
     Indication: HYPERTENSION
  10. ALVESCO [Concomitant]
  11. CEFUROXIME [Concomitant]
  12. OPTICROM [Concomitant]
  13. SPIRIVA [Concomitant]

REACTIONS (15)
  - Dyspepsia [Unknown]
  - Abdominal pain upper [Unknown]
  - Gastrooesophageal reflux disease [Unknown]
  - Productive cough [Unknown]
  - Haemoptysis [Unknown]
  - Cough [Recovered/Resolved]
  - Dyspnoea [Recovered/Resolved]
  - Off label use [Unknown]
  - Dizziness [Recovered/Resolved]
  - Regurgitation [Recovered/Resolved]
  - Vomiting [Recovered/Resolved]
  - Initial insomnia [Not Recovered/Not Resolved]
  - Somnolence [Not Recovered/Not Resolved]
  - Weight loss poor [Not Recovered/Not Resolved]
  - Treatment noncompliance [Unknown]
